FAERS Safety Report 19162174 (Version 1)
Quarter: 2021Q2

REPORT INFORMATION
  Report Type: Spontaneous
  Country: US (occurrence: US)
  Receive Date: 20210421
  Receipt Date: 20210421
  Transmission Date: 20210717
  Serious: No
  Sender: FDA-Public Use
  Company Number: US-SA-2021SA128331

PATIENT
  Age: 46 Year
  Sex: Male

DRUGS (1)
  1. THYMOGLOBULIN [Suspect]
     Active Substance: LAPINE T-LYMPHOCYTE IMMUNE GLOBULIN
     Indication: ALLOGENIC STEM CELL TRANSPLANTATION
     Dosage: 200 MG, QD
     Route: 042
     Dates: start: 20201205, end: 20201207

REACTIONS (1)
  - Blood creatinine increased [Recovered/Resolved]

NARRATIVE: CASE EVENT DATE: 20201206
